FAERS Safety Report 24345455 (Version 1)
Quarter: 2024Q3

REPORT INFORMATION
  Report Type: Spontaneous
  Country: GB (occurrence: GB)
  Receive Date: 20240920
  Receipt Date: 20240920
  Transmission Date: 20241016
  Serious: Yes (Other)
  Sender: DR REDDYS
  Company Number: None

PATIENT
  Sex: Female

DRUGS (4)
  1. FEXOFENADINE [Suspect]
     Active Substance: FEXOFENADINE HYDROCHLORIDE
     Indication: Solar urticaria
     Dosage: 180 MG TWICE A DAY
  2. FAMOTIDINE [Suspect]
     Active Substance: FAMOTIDINE
     Indication: Solar urticaria
     Dosage: 40MG ON
  3. MONTELUKAST [Concomitant]
     Active Substance: MONTELUKAST SODIUM
     Indication: Adverse drug reaction
  4. NYTOL HERBAL UNWIND [Concomitant]
     Indication: Adverse drug reaction

REACTIONS (3)
  - Hypertension [Recovered/Resolved]
  - Heart rate irregular [Recovered/Resolved]
  - Dizziness [Recovered/Resolved]
